FAERS Safety Report 17923644 (Version 1)
Quarter: 2020Q2

REPORT INFORMATION
  Report Type: Spontaneous
  Country: US (occurrence: US)
  Receive Date: 20200619
  Receipt Date: 20200619
  Transmission Date: 20200714
  Serious: Yes (Hospitalization)
  Sender: FDA-Public Use
  Company Number: None

PATIENT
  Sex: Female

DRUGS (1)
  1. VELTASSA [Suspect]
     Active Substance: PATIROMER
     Indication: HYPERKALAEMIA
     Dosage: 8.4 GM 4X/WEEK ORAL
     Route: 048
     Dates: start: 201911

REACTIONS (4)
  - Blood potassium abnormal [None]
  - Wrong technique in product usage process [None]
  - Dialysis [None]
  - Cardiac arrest [None]
